FAERS Safety Report 20233060 (Version 1)
Quarter: 2021Q4

REPORT INFORMATION
  Report Type: Report from Study
  Country: CA (occurrence: CA)
  Receive Date: 20211227
  Receipt Date: 20211227
  Transmission Date: 20220303
  Serious: Yes (Hospitalization, Other)
  Sender: FDA-Public Use
  Company Number: CA-TAKEDA-2021TUS081494

PATIENT
  Age: 74 Year
  Sex: Male

DRUGS (2)
  1. VEDOLIZUMAB [Suspect]
     Active Substance: VEDOLIZUMAB
     Indication: Crohn^s disease
     Dosage: 300 MILLIGRAM
     Route: 042
     Dates: start: 20190620
  2. CORTISONE [Concomitant]
     Active Substance: CORTISONE
     Indication: Back disorder
     Dosage: UNK UNK, Q3MONTHS

REACTIONS (1)
  - Spinal operation [Unknown]
